FAERS Safety Report 6572487-X (Version None)
Quarter: 2010Q1

REPORT INFORMATION
  Report Type: 
  Country: None (occurrence: None)
  Receive Date: 20100205
  Receipt Date: 20100125
  Transmission Date: 20100710
  Serious: Yes (Hospitalization)
  Sender: FDA-Public Use
  Company Number: FR-CELGENEUS-056-50794-09020799

PATIENT
  Sex: Male

DRUGS (9)
  1. VIDAZA [Suspect]
     Indication: MYELODYSPLASTIC SYNDROME
     Route: 051
     Dates: start: 20090130, end: 20090130
  2. FUROSEMIDE [Concomitant]
     Indication: DRUG USE FOR UNKNOWN INDICATION
     Route: 048
  3. AMIODARONE HCL [Concomitant]
     Indication: DRUG USE FOR UNKNOWN INDICATION
     Route: 065
  4. PROPECIA [Concomitant]
     Indication: DRUG USE FOR UNKNOWN INDICATION
     Route: 048
  5. IMOVANE [Concomitant]
     Indication: DRUG USE FOR UNKNOWN INDICATION
     Route: 048
  6. KARDEGIC [Concomitant]
     Indication: DRUG USE FOR UNKNOWN INDICATION
     Route: 048
  7. NEO RECORMON [Concomitant]
     Indication: DRUG USE FOR UNKNOWN INDICATION
     Route: 050
  8. GRANOCYTE 34 [Concomitant]
     Indication: DRUG USE FOR UNKNOWN INDICATION
     Route: 050
  9. PHOSPHORUS [Concomitant]
     Indication: FLUID REPLACEMENT
     Route: 065

REACTIONS (2)
  - BLOOD PHOSPHORUS DECREASED [None]
  - CONFUSIONAL STATE [None]
